FAERS Safety Report 8332815-1 (Version None)
Quarter: 2012Q1

REPORT INFORMATION
  Report Type: 
  Country: None (occurrence: None)
  Receive Date: 20120327
  Receipt Date: 20110307
  Transmission Date: 20120608
  Serious: Yes (Other)
  Sender: FDA-Public Use
  Company Number: PHEH2010US02350

PATIENT
  Age: 56 Year
  Sex: Female

DRUGS (6)
  1. INSULIN [Concomitant]
  2. GLEEVEC [Suspect]
     Indication: CHRONIC MYELOID LEUKAEMIA
     Dosage: 400 MG DAILY, ORAL; 300 MG DAILY, ORAL; 200 MG DAILY, ORAL; 400 MG DAILY
     Route: 048
     Dates: start: 20100301, end: 20101201
  3. GLEEVEC [Suspect]
     Indication: CHRONIC MYELOID LEUKAEMIA
     Dosage: 400 MG DAILY, ORAL; 300 MG DAILY, ORAL; 200 MG DAILY, ORAL; 400 MG DAILY
     Route: 048
     Dates: end: 20110304
  4. GLEEVEC [Suspect]
     Indication: CHRONIC MYELOID LEUKAEMIA
     Dosage: 400 MG DAILY, ORAL; 300 MG DAILY, ORAL; 200 MG DAILY, ORAL; 400 MG DAILY
     Route: 048
     Dates: start: 20091201, end: 20101201
  5. GLEEVEC [Suspect]
     Indication: CHRONIC MYELOID LEUKAEMIA
     Dosage: 400 MG DAILY, ORAL; 300 MG DAILY, ORAL; 200 MG DAILY, ORAL; 400 MG DAILY
     Route: 048
     Dates: start: 20090113, end: 20091101
  6. GLUCOPHAGE [Concomitant]

REACTIONS (7)
  - WEIGHT INCREASED [None]
  - NEUTROPHIL COUNT DECREASED [None]
  - HEPATOTOXICITY [None]
  - NEUTROPENIA [None]
  - DRUG INEFFECTIVE [None]
  - BONE PAIN [None]
  - ARTHRALGIA [None]
